FAERS Safety Report 12343387 (Version 1)
Quarter: 2016Q2

REPORT INFORMATION
  Report Type: Spontaneous
  Country: US (occurrence: US)
  Receive Date: 20160506
  Receipt Date: 20160506
  Transmission Date: 20160815
  Serious: No
  Sender: FDA-Public Use
  Company Number: US-ACTELION-A-NJ2016-135356

PATIENT
  Age: 71 Year
  Sex: Female

DRUGS (14)
  1. ROPINIROLE. [Concomitant]
     Active Substance: ROPINIROLE
  2. LIPITOR [Concomitant]
     Active Substance: ATORVASTATIN CALCIUM
  3. MULTIVITAMIN [Concomitant]
     Active Substance: VITAMINS
  4. MELOXICAM. [Concomitant]
     Active Substance: MELOXICAM
  5. SUCRALFATE. [Concomitant]
     Active Substance: SUCRALFATE
  6. TRIAMCINOLONE [Concomitant]
     Active Substance: TRIAMCINOLONE
  7. CLOBETASOL [Concomitant]
     Active Substance: CLOBETASOL
  8. VALCHLOR [Suspect]
     Active Substance: MECHLORETHAMINE
     Indication: MYCOSIS FUNGOIDES
     Dosage: UNK, APPLY THIN FILMTO AFFECTED AREA, QOD
     Route: 061
     Dates: start: 201407
  9. CLONIDINE. [Concomitant]
     Active Substance: CLONIDINE
  10. UREA. [Concomitant]
     Active Substance: UREA
  11. PANTOPRAZOLE [Concomitant]
     Active Substance: PANTOPRAZOLE SODIUM
  12. CITALOPRAM [Concomitant]
     Active Substance: CITALOPRAM HYDROBROMIDE
  13. CLOTRIMAZOLE. [Concomitant]
     Active Substance: CLOTRIMAZOLE
  14. CICLOPIROX. [Concomitant]
     Active Substance: CICLOPIROX

REACTIONS (1)
  - Skin lesion [Unknown]
